FAERS Safety Report 8194138-3 (Version None)
Quarter: 2012Q1

REPORT INFORMATION
  Report Type: 
  Country: None (occurrence: None)
  Receive Date: 20120308
  Receipt Date: 20120302
  Transmission Date: 20120608
  Serious: Yes (Hospitalization)
  Sender: FDA-Public Use
  Company Number: US-ABBOTT-11P-163-0878801-00

PATIENT
  Sex: Male

DRUGS (4)
  1. HUMIRA [Concomitant]
     Route: 058
     Dates: start: 20100824
  2. HUMIRA [Suspect]
     Indication: PSORIASIS
     Route: 058
     Dates: start: 20100831, end: 20101213
  3. CORTICOSTEROIDS [Concomitant]
     Indication: PSORIASIS
     Dates: start: 20090121
  4. MULTI-VITAMIN [Concomitant]
     Indication: PROPHYLAXIS
     Dates: start: 20000801

REACTIONS (1)
  - EYE INFECTION [None]
